FAERS Safety Report 5092431-4 (Version None)
Quarter: 2006Q3

REPORT INFORMATION
  Report Type: 
  Country: None (occurrence: None)
  Receive Date: 20060825
  Receipt Date: 20060303
  Transmission Date: 20061208
  Serious: Yes (Death)
  Sender: FDA-Public Use
  Company Number: 2005PV001997

PATIENT
  Age: 47 Year
  Sex: Male
  Weight: 122.4712 kg

DRUGS (4)
  1. BYETTA [Suspect]
     Indication: DIABETES MELLITUS NON-INSULIN-DEPENDENT
     Dosage: SEE IMAGE
     Route: 058
     Dates: start: 20050727, end: 20050101
  2. BYETTA [Suspect]
     Indication: DIABETES MELLITUS NON-INSULIN-DEPENDENT
     Dosage: SEE IMAGE
     Route: 058
     Dates: start: 20050101, end: 20050810
  3. LANTUS [Concomitant]
  4. SYMLIN [Concomitant]

REACTIONS (13)
  - ANOREXIA [None]
  - DIET REFUSAL [None]
  - DISEASE RECURRENCE [None]
  - DYSKINESIA [None]
  - HEADACHE [None]
  - HYPOAESTHESIA [None]
  - HYPOGLYCAEMIA [None]
  - KETONURIA [None]
  - LUNG CANCER METASTATIC [None]
  - METASTASES TO CENTRAL NERVOUS SYSTEM [None]
  - MUSCULOSKELETAL STIFFNESS [None]
  - NAUSEA [None]
  - WEIGHT DECREASED [None]
